FAERS Safety Report 16930476 (Version 1)
Quarter: 2019Q4

REPORT INFORMATION
  Report Type: Spontaneous
  Country: US (occurrence: US)
  Receive Date: 20191017
  Receipt Date: 20191017
  Transmission Date: 20200122
  Serious: No
  Sender: FDA-Public Use
  Company Number: US-PFIZER INC-2019446831

PATIENT
  Age: 65 Year
  Sex: Female
  Weight: 89.34 kg

DRUGS (1)
  1. IBRANCE [Suspect]
     Active Substance: PALBOCICLIB
     Indication: BREAST CANCER METASTATIC
     Dosage: 125 MG, CYCLIC (D1-21 Q28D)
     Route: 048
     Dates: start: 20190923

REACTIONS (1)
  - Red blood cell count decreased [Recovered/Resolved]
